FAERS Safety Report 20046113 (Version 1)
Quarter: 2021Q4

REPORT INFORMATION
  Report Type: Spontaneous
  Country: US (occurrence: None)
  Receive Date: 20211109
  Receipt Date: 20211109
  Transmission Date: 20220303
  Serious: No
  Sender: FDA-Public Use
  Company Number: None

PATIENT
  Age: 33 Year
  Sex: Male

DRUGS (2)
  1. INVEGA SUSTENNA [Suspect]
     Active Substance: PALIPERIDONE PALMITATE
     Dosage: OTHER QUANTITY : 1 INJECTION;?OTHER FREQUENCY : OTHER;?
     Route: 030
     Dates: start: 20211001
  2. ARISTADA [Suspect]
     Active Substance: ARIPIPRAZOLE LAUROXIL

REACTIONS (4)
  - Lethargy [None]
  - Weight increased [None]
  - Somnolence [None]
  - Cognitive disorder [None]

NARRATIVE: CASE EVENT DATE: 20211108
